FAERS Safety Report 24007134 (Version 1)
Quarter: 2024Q2

REPORT INFORMATION
  Report Type: Report from Study
  Country: US (occurrence: US)
  Receive Date: 20240624
  Receipt Date: 20240624
  Transmission Date: 20240715
  Serious: Yes (Hospitalization)
  Sender: FDA-Public Use
  Company Number: US-MTPC-MTDA2024-0010740

PATIENT
  Sex: Female

DRUGS (3)
  1. RADICAVA ORS [Suspect]
     Active Substance: EDARAVONE
     Indication: Amyotrophic lateral sclerosis
     Dosage: 5 MILLILITER, QD FOR 10 OUT OF 14 DAYS, 14 DAYS OFF
     Route: 048
     Dates: start: 202211
  2. RADICAVA ORS [Suspect]
     Active Substance: EDARAVONE
     Indication: Amyotrophic lateral sclerosis
     Dosage: 5 MILLILITER, QD FOR 10 OUT OF 14 DAYS, 14 DAYS OFF
     Route: 048
     Dates: start: 202211
  3. Aakg [Concomitant]
     Indication: Product used for unknown indication
     Dosage: UNK, TID
     Route: 065

REACTIONS (4)
  - Muscular weakness [Unknown]
  - Condition aggravated [Unknown]
  - Back pain [Unknown]
  - Fatigue [Unknown]
